FAERS Safety Report 5084241-9 (Version None)
Quarter: 2006Q3

REPORT INFORMATION
  Report Type: 
  Country: None (occurrence: None)
  Receive Date: 20060821
  Receipt Date: 20060317
  Transmission Date: 20061208
  Serious: No
  Sender: FDA-Public Use
  Company Number: US-BRISTOL-MYERS SQUIBB COMPANY-13319645

PATIENT
  Age: 55 Year
  Sex: Female
  Weight: 63 kg

DRUGS (4)
  1. TEQUIN [Suspect]
     Indication: SINUSITIS
     Dates: start: 20060307, end: 20060317
  2. ENBREL [Concomitant]
  3. PREDNISONE [Concomitant]
  4. CHLOROQUINE PHOSPHATE [Concomitant]

REACTIONS (1)
  - TINNITUS [None]
